FAERS Safety Report 6176665-3 (Version None)
Quarter: 2009Q2

REPORT INFORMATION
  Report Type: 
  Country: None (occurrence: None)
  Receive Date: 20090501
  Receipt Date: 20081117
  Transmission Date: 20091009
  Serious: Yes (Hospitalization, Other)
  Sender: FDA-Public Use
  Company Number: US-ALEXION-A200800297

PATIENT

DRUGS (10)
  1. SOLIRIS [Suspect]
     Indication: PAROXYSMAL NOCTURNAL HAEMOGLOBINURIA
     Dates: start: 20070101
  2. SOLIRIS [Suspect]
     Dosage: 900 MG, SINGLE
     Route: 042
     Dates: start: 20081006, end: 20081006
  3. SOLIRIS [Suspect]
     Dosage: 600 MG, SINGLE
     Route: 042
     Dates: start: 20081013, end: 20081013
  4. SOLIRIS [Suspect]
     Dosage: 600 MG, SINGLE
     Route: 042
     Dates: start: 20081020, end: 20081020
  5. SOLIRIS [Suspect]
     Dosage: 600 MG, SINGLE
     Route: 042
     Dates: start: 20081104, end: 20081104
  6. SOLIRIS [Suspect]
     Dosage: 600 MG, SINGLE
     Route: 042
     Dates: start: 20081111, end: 20081111
  7. SOLIRIS [Suspect]
     Dosage: 900 MG, SINGLE
     Route: 042
     Dates: start: 20081101, end: 20081101
  8. CYCLOSPORINE [Concomitant]
     Indication: BONE MARROW FAILURE
  9. INSULIN [Concomitant]
     Indication: DIABETES MELLITUS
     Dosage: PUMP
  10. HEPARIN [Concomitant]
     Indication: THROMBOSIS

REACTIONS (7)
  - CENTRAL LINE INFECTION [None]
  - DIARRHOEA [None]
  - HAEMOLYSIS [None]
  - NEUTROPENIA [None]
  - PNEUMONIA [None]
  - STAPHYLOCOCCAL INFECTION [None]
  - STAPHYLOCOCCAL SEPSIS [None]
